FAERS Safety Report 8911782 (Version 2)
Quarter: 2012Q4

REPORT INFORMATION
  Report Type: 
  Country: BR (occurrence: BR)
  Receive Date: 20121116
  Receipt Date: 20121210
  Transmission Date: 20130627
  Serious: Yes (Other)
  Sender: FDA-Public Use
  Company Number: BR-PFIZER INC-2012280725

PATIENT
  Age: 80 Year
  Sex: Female
  Weight: 45 kg

DRUGS (5)
  1. CELEBRA [Suspect]
     Indication: NECK PAIN
     Dosage: 200 mg (one capsule), 2x/day
     Route: 048
     Dates: start: 20121029
  2. CELEBRA [Suspect]
     Indication: PAIN
  3. CELEBRA [Suspect]
     Indication: HIP ARTHROSIS
  4. MELOXICAM [Suspect]
     Indication: PAIN
     Dosage: UNK
     Dates: start: 20121111
  5. PROPANOLOL [Concomitant]
     Indication: HEART RATE ABNORMAL

REACTIONS (9)
  - Visual impairment [Unknown]
  - Tongue injury [Unknown]
  - Hypertension [Unknown]
  - Gastrointestinal pain [Unknown]
  - Dizziness [Unknown]
  - Vomiting [Unknown]
  - Diarrhoea [Unknown]
  - Flatulence [Unknown]
  - Malaise [Unknown]
